FAERS Safety Report 7487519-4 (Version None)
Quarter: 2011Q2

REPORT INFORMATION
  Report Type: 
  Country: None (occurrence: None)
  Receive Date: 20110518
  Receipt Date: 20110503
  Transmission Date: 20111010
  Serious: Yes (Hospitalization)
  Sender: FDA-Public Use
  Company Number: AU-AMGEN-AUSCT2011022710

PATIENT
  Age: 87 Year
  Sex: Male

DRUGS (4)
  1. ROMIPLOSTIM [Suspect]
     Indication: THROMBOCYTOPENIC PURPURA
     Dosage: 738 A?G, QWK
     Route: 058
     Dates: start: 20100902
  2. PREDNISOLONE [Concomitant]
     Indication: THROMBOCYTOPENIA
     Dosage: 5 MG, QD
     Route: 048
     Dates: start: 20110428
  3. OSTEOVIT D [Concomitant]
     Dosage: 25 A?G, QD
     Dates: start: 20090901
  4. PANTOPRAZOLE [Concomitant]
     Dosage: 40 MG, QD
     Route: 048
     Dates: start: 20101013

REACTIONS (2)
  - GANGRENE [None]
  - EMBOLISM [None]
